FAERS Safety Report 19429669 (Version 1)
Quarter: 2021Q2

REPORT INFORMATION
  Report Type: Other
  Country: DE (occurrence: DE)
  Receive Date: 20210617
  Receipt Date: 20210617
  Transmission Date: 20210717
  Serious: Yes (Congenital Anomaly, Other)
  Sender: FDA-Public Use
  Company Number: DE-GLENMARK PHARMACEUTICALS-2021GMK054462

PATIENT

DRUGS (6)
  1. PRAMIPEXOLE DIHYDROCHLORIDE. [Suspect]
     Active Substance: PRAMIPEXOLE DIHYDROCHLORIDE
     Indication: RESTLESS LEGS SYNDROME
     Dosage: 0.52 [MG/D (0?1?0) ]
     Route: 064
     Dates: start: 20191224, end: 20200922
  2. METOPROLOL. [Concomitant]
     Active Substance: METOPROLOL
     Indication: GESTATIONAL HYPERTENSION
     Dosage: UNK
     Route: 064
  3. GAVISCON [ALGINIC ACID;ALUMINIUM HYDROXIDE GEL, DRIED;MAGNESIUM TRISIL [Concomitant]
     Active Substance: ALGINIC ACID\ALUMINUM HYDROXIDE\MAGNESIUM TRISILICATE
     Indication: DYSPEPSIA
     Dosage: UNK (25. ? 39. GESTATIONAL WEEK)
     Route: 064
  4. SCHUSSLER SALZ NR. 7 [Concomitant]
     Indication: SELF-MEDICATION
     Dosage: UNK
     Route: 064
  5. L?THYROXIN [LEVOTHYROXINE SODIUM] [Concomitant]
     Active Substance: LEVOTHYROXINE SODIUM
     Indication: AUTOIMMUNE THYROIDITIS
     Dosage: 125 MICROGRAM
     Route: 064
     Dates: start: 20191224, end: 20200922
  6. PAROXETIN [PAROXETINE] [Suspect]
     Active Substance: PAROXETINE
     Indication: DEPRESSION
     Dosage: 15 MILLIGRAM, QD (15 [MG/D (7.5?7.5?0) ] 2 SEPARATED DOSES )
     Route: 064
     Dates: start: 20191224, end: 20200922

REACTIONS (2)
  - Ventricular septal defect [Unknown]
  - Foetal exposure during pregnancy [Unknown]

NARRATIVE: CASE EVENT DATE: 2020
